FAERS Safety Report 6188452-0 (Version None)
Quarter: 2009Q2

REPORT INFORMATION
  Report Type: 
  Country: None (occurrence: None)
  Receive Date: 20090513
  Receipt Date: 20090504
  Transmission Date: 20091009
  Serious: Yes (Hospitalization, Other)
  Sender: FDA-Public Use
  Company Number: US-BAYER-200839701NA

PATIENT
  Age: 89 Year
  Sex: Female
  Weight: 48 kg

DRUGS (22)
  1. NEXAVAR [Suspect]
     Indication: GASTROINTESTINAL STROMAL TUMOUR
     Dosage: TOTAL DAILY DOSE: 800 MG  UNIT DOSE: 200 MG
     Route: 048
     Dates: start: 20081119, end: 20081125
  2. NEXAVAR [Suspect]
     Dosage: UNIT DOSE: 200 MG
     Route: 048
     Dates: start: 20081125, end: 20090324
  3. GLEEVEC [Concomitant]
     Dosage: TOTAL DAILY DOSE: 400 MG
     Dates: start: 20060718
  4. SUTENT [Concomitant]
     Dosage: 37.5MG X 2 DAYS AND 50MG ON 3RD DAY; CONT FOR 4 WEEKS THEN 2 WEEKS OFF
     Route: 048
     Dates: start: 20080317
  5. SUTENT [Concomitant]
     Dosage: TOTAL DAILY DOSE: 37.5 MG
     Dates: start: 20080305, end: 20080317
  6. SUTENT [Concomitant]
     Dosage: 25MG ALTERNATING WITH 37.5MG X 2 WEEKS
     Dates: start: 20071219, end: 20080119
  7. PAIN MED [Concomitant]
  8. TYLENOL [Concomitant]
     Dates: start: 20070214
  9. VICODIN [Concomitant]
     Dates: start: 20081124, end: 20090113
  10. IMODIUM [Concomitant]
     Dates: start: 20060718, end: 20090420
  11. CALCIUM [Concomitant]
     Dosage: TOTAL DAILY DOSE: 1200 MG
     Dates: start: 20090113
  12. CALCIUM [Concomitant]
     Dosage: TOTAL DAILY DOSE: 1800 MG
     Dates: start: 20080718, end: 20090113
  13. KEFLEX [Concomitant]
     Indication: OEDEMA PERIPHERAL
     Route: 048
     Dates: start: 20081230
  14. KEFLEX [Concomitant]
     Dosage: PT TAKES 4 BID X 10 DAYS PRN
  15. PREDNISONE [Concomitant]
     Indication: OEDEMA PERIPHERAL
     Dosage: TOTAL DAILY DOSE: 5 MG
     Route: 048
     Dates: start: 20090209, end: 20090420
  16. MAGNESIUM SULFATE [Concomitant]
     Dates: start: 20080305
  17. M.V.I. [Concomitant]
     Dates: start: 20070214
  18. ADVIL [Concomitant]
     Dates: start: 20080305, end: 20090113
  19. ALEVE [Concomitant]
     Dates: start: 20090113
  20. AUGMENTIN '125' [Concomitant]
     Route: 048
     Dates: start: 20081203
  21. K-DUR [Concomitant]
     Dosage: TOTAL DAILY DOSE: 10 MEQ
     Dates: start: 20061013
  22. ASCORBIC ACID [Concomitant]
     Dosage: TOTAL DAILY DOSE: 1000 MG
     Dates: start: 20061120

REACTIONS (19)
  - ABDOMINAL PAIN [None]
  - CERUMEN IMPACTION [None]
  - DIARRHOEA [None]
  - DRY SKIN [None]
  - EPISTAXIS [None]
  - FATIGUE [None]
  - GAIT DISTURBANCE [None]
  - GASTROINTESTINAL STROMAL TUMOUR [None]
  - HEADACHE [None]
  - HYDRONEPHROSIS [None]
  - HYPOACUSIS [None]
  - LOCALISED INFECTION [None]
  - MUSCLE SPASMS [None]
  - NAUSEA [None]
  - ORAL PAIN [None]
  - PAIN IN EXTREMITY [None]
  - VOMITING [None]
  - WEIGHT DECREASED [None]
  - WITHDRAWAL SYNDROME [None]
